FAERS Safety Report 4885244-7 (Version None)
Quarter: 2005Q4

REPORT INFORMATION
  Report Type: 
  Country: None (occurrence: None)
  Receive Date: 20051214
  Receipt Date: 20050725
  Transmission Date: 20060501
  Serious: Yes (Hospitalization)
  Sender: FDA-Public Use
  Company Number: RS005359-USA

PATIENT
  Age: 77 Year
  Sex: Female
  Weight: 70 kg

DRUGS (2)
  1. ACIPHEX [Suspect]
     Dosage: ORAL
     Route: 048
     Dates: start: 20050714, end: 20050724
  2. LEVAQUIN [Concomitant]

REACTIONS (5)
  - BLOOD CREATININE INCREASED [None]
  - CHILLS [None]
  - NAUSEA [None]
  - PYREXIA [None]
  - TREMOR [None]
